FAERS Safety Report 20389200 (Version 2)
Quarter: 2022Q1

REPORT INFORMATION
  Report Type: Report from Study
  Country: US (occurrence: US)
  Receive Date: 20220128
  Receipt Date: 20220329
  Transmission Date: 20220424
  Serious: Yes (Other)
  Sender: FDA-Public Use
  Company Number: US-JNJFOC-20200628334

PATIENT
  Age: 66 Year
  Sex: Female
  Weight: 63.560 kg

DRUGS (13)
  1. XARELTO [Suspect]
     Active Substance: RIVAROXABAN
     Indication: Deep vein thrombosis
     Route: 048
     Dates: start: 201908, end: 201912
  2. XARELTO [Suspect]
     Active Substance: RIVAROXABAN
     Indication: Thrombosis
     Dosage: FOR 3 WEEKS AND LATER 20 MG OD
     Route: 048
     Dates: start: 20200513, end: 20200617
  3. XARELTO [Suspect]
     Active Substance: RIVAROXABAN
     Route: 048
     Dates: start: 20200603
  4. XARELTO [Suspect]
     Active Substance: RIVAROXABAN
     Route: 048
  5. LEVOTHYROXINE [Concomitant]
     Active Substance: LEVOTHYROXINE
     Indication: Hypothyroidism
     Dosage: 1 IN MORNING
     Dates: start: 201607
  6. TRAMADOL [Concomitant]
     Active Substance: TRAMADOL
     Indication: Pain
     Dates: start: 2013
  7. FENTANYL [Concomitant]
     Active Substance: FENTANYL
     Indication: Pain
     Dosage: 62.5 MCG OF 3 DAYS
     Dates: start: 201605
  8. TRAZODONE [Concomitant]
     Active Substance: TRAZODONE HYDROCHLORIDE
     Indication: Sleep disorder
     Dates: start: 201506
  9. POTASSIUM [Concomitant]
     Active Substance: POTASSIUM
     Dates: start: 202006
  10. VITAMIN K [Concomitant]
     Active Substance: PHYTONADIONE
  11. JANTOVEN [Concomitant]
     Active Substance: WARFARIN SODIUM
  12. WELLBUTRIN [Concomitant]
     Active Substance: BUPROPION HYDROCHLORIDE
     Indication: Depression
  13. BUPROPION [Concomitant]
     Active Substance: BUPROPION
     Indication: Depression

REACTIONS (3)
  - Deep vein thrombosis [Recovering/Resolving]
  - Thrombosis [Unknown]
  - Treatment failure [Unknown]

NARRATIVE: CASE EVENT DATE: 20200617
